FAERS Safety Report 8583203-4 (Version None)
Quarter: 2012Q3

REPORT INFORMATION
  Report Type: 
  Country: None (occurrence: None)
  Receive Date: 20120727
  Receipt Date: 20120712
  Transmission Date: 20120928
  Serious: Yes (Hospitalization)
  Sender: FDA-Public Use
  Company Number: 2012CP000082

PATIENT
  Age: 78 Year
  Sex: Male

DRUGS (3)
  1. ACETAMINOPHEN [Suspect]
     Indication: ANALGESIC THERAPY
     Dosage: IV
     Route: 042
     Dates: start: 20120611, end: 20120611
  2. FLUTICASONE PROPIONATE/SALMETEROL [Concomitant]
  3. DILTIAZEM HCL [Concomitant]

REACTIONS (1)
  - THROMBOCYTOPENIA [None]
